FAERS Safety Report 14114346 (Version 1)
Quarter: 2017Q4

REPORT INFORMATION
  Report Type: Spontaneous
  Country: US (occurrence: None)
  Receive Date: 20171023
  Receipt Date: 20171023
  Transmission Date: 20180321
  Serious: No
  Sender: FDA-Public Use
  Company Number: None

PATIENT
  Weight: 64.41 kg

DRUGS (4)
  1. PROLIA [Suspect]
     Active Substance: DENOSUMAB
     Indication: POLYARTHRITIS
     Dosage: Q6MTHS
     Route: 058
     Dates: start: 201705
  2. PROLIA [Suspect]
     Active Substance: DENOSUMAB
     Indication: PSORIASIS
     Dosage: Q6MTHS
     Route: 058
     Dates: start: 201705
  3. PROLIA [Suspect]
     Active Substance: DENOSUMAB
     Indication: OSTEOPOROSIS
     Dosage: Q6MTHS
     Route: 058
     Dates: start: 201705
  4. HUMIRA [Suspect]
     Active Substance: ADALIMUMAB
     Route: 058
     Dates: start: 201706

REACTIONS (1)
  - Psoriasis [None]
